FAERS Safety Report 13085798 (Version 2)
Quarter: 2017Q2

REPORT INFORMATION
  Report Type: Spontaneous
  Country: JP (occurrence: JP)
  Receive Date: 20170104
  Receipt Date: 20170418
  Transmission Date: 20170830
  Serious: Yes (Other)
  Sender: FDA-Public Use
  Company Number: JP-ELI_LILLY_AND_COMPANY-JP201612010442

PATIENT
  Age: 79 Year
  Sex: Female

DRUGS (1)
  1. ERBITUX [Suspect]
     Active Substance: CETUXIMAB
     Indication: HYPOPHARYNGEAL CANCER
     Dosage: 300 MG, WEEKLY (1/W)
     Route: 042
     Dates: start: 20150423, end: 20150604

REACTIONS (2)
  - Mucosal necrosis [Recovered/Resolved]
  - Spondylitis [Recovered/Resolved]

NARRATIVE: CASE EVENT DATE: 20160308
